FAERS Safety Report 22837440 (Version 2)
Quarter: 2024Q1

REPORT INFORMATION
  Report Type: Spontaneous
  Country: BE (occurrence: BE)
  Receive Date: 20230818
  Receipt Date: 20240103
  Transmission Date: 20240410
  Serious: Yes (Other)
  Sender: FDA-Public Use
  Company Number: BE-009507513-2308BEL003015

PATIENT
  Age: 60 Year
  Sex: Female

DRUGS (6)
  1. TEMODAL [Suspect]
     Active Substance: TEMOZOLOMIDE
     Indication: Glioblastoma
     Dosage: UNK
     Route: 048
     Dates: start: 20221212, end: 20230120
  2. TEMODAL [Suspect]
     Active Substance: TEMOZOLOMIDE
     Dosage: 400 MILLIGRAM, CYCLICAL
     Route: 048
     Dates: start: 20230217, end: 2023
  3. TEMODAL [Suspect]
     Active Substance: TEMOZOLOMIDE
     Dosage: START CYCLE 2 TEMODAL 400MG FOR 5 DAYS (200MG/M2)
     Route: 048
     Dates: start: 20230318
  4. ZIRABEV [Suspect]
     Active Substance: BEVACIZUMAB-BVZR
     Indication: Glioblastoma
  5. MEDROL [Suspect]
     Active Substance: METHYLPREDNISOLONE
     Dosage: 32MG 1.25COMPR
  6. MEDROL [Suspect]
     Active Substance: METHYLPREDNISOLONE
     Dosage: UNK
     Dates: start: 2023

REACTIONS (2)
  - Brain oedema [Unknown]
  - Cushingoid [Unknown]

NARRATIVE: CASE EVENT DATE: 20230101
